FAERS Safety Report 25839909 (Version 1)
Quarter: 2025Q3

REPORT INFORMATION
  Report Type: Report from Study
  Country: US (occurrence: US)
  Receive Date: 20250924
  Receipt Date: 20250924
  Transmission Date: 20251021
  Serious: No
  Sender: SUNOVION
  Company Number: US-SUMITOMO PHARMA SWITZERLAND GMBH-2025SPA011832

PATIENT
  Age: 65 Year
  Sex: Male

DRUGS (2)
  1. ORGOVYX [Suspect]
     Active Substance: RELUGOLIX
     Indication: Prostate cancer
     Route: 048
     Dates: start: 20250806, end: 20250806
  2. ORGOVYX [Suspect]
     Active Substance: RELUGOLIX
     Route: 048

REACTIONS (5)
  - Flatulence [Unknown]
  - Anorectal discomfort [Recovering/Resolving]
  - Burn of internal organs [Recovering/Resolving]
  - Diarrhoea [Unknown]
  - Drug ineffective [Unknown]
